FAERS Safety Report 8011014-7 (Version None)
Quarter: 2011Q4

REPORT INFORMATION
  Report Type: 
  Country: None (occurrence: None)
  Receive Date: 20111228
  Receipt Date: 20111216
  Transmission Date: 20120403
  Serious: Yes (Hospitalization)
  Sender: FDA-Public Use
  Company Number: GB-ELI_LILLY_AND_COMPANY-GB201112005841

PATIENT
  Age: 39 Year
  Sex: Female

DRUGS (4)
  1. OLANZAPINE [Suspect]
     Indication: SCHIZOPHRENIA
     Dosage: 15 MG, UNK
     Dates: start: 20110107, end: 20110428
  2. CLOZAPINE [Concomitant]
     Indication: SCHIZOPHRENIA
     Dosage: 450 MG, QD
     Dates: start: 20101201, end: 20110217
  3. CLOZAPINE [Concomitant]
     Dosage: 400 MG, QD
     Dates: start: 20110429
  4. CLOZAPINE [Concomitant]
     Indication: SCHIZOPHRENIA
     Dosage: 550 MG, UNK
     Dates: start: 20020102, end: 20090625

REACTIONS (2)
  - SCHIZOPHRENIA [None]
  - MATERNAL EXPOSURE DURING PREGNANCY [None]
